FAERS Safety Report 23888329 (Version 1)
Quarter: 2024Q2

REPORT INFORMATION
  Report Type: Spontaneous
  Country: SE (occurrence: SE)
  Receive Date: 20240523
  Receipt Date: 20240523
  Transmission Date: 20240715
  Serious: Yes (Disabling)
  Sender: FDA-Public Use
  Company Number: None

PATIENT
  Sex: Male
  Weight: 86 kg

DRUGS (2)
  1. ATORVASTATIN [Suspect]
     Active Substance: ATORVASTATIN
     Indication: Cerebrovascular accident prophylaxis
     Dosage: 20-40 MG/DAY
     Dates: start: 20211222, end: 20240415
  2. ASPIRIN [Concomitant]
     Active Substance: ASPIRIN
     Dates: start: 20211222

REACTIONS (10)
  - Headache [Recovered/Resolved]
  - Abdominal pain [Not Recovered/Not Resolved]
  - Nystagmus [Recovered/Resolved]
  - Pancreatitis [Unknown]
  - Illusion [Unknown]
  - Abnormal faeces [Not Recovered/Not Resolved]
  - Dizziness [Unknown]
  - Blindness transient [Recovering/Resolving]
  - Secretion discharge [Not Recovered/Not Resolved]
  - Dyspnoea [Unknown]

NARRATIVE: CASE EVENT DATE: 20220415
